FAERS Safety Report 9252398 (Version 1)
Quarter: 2013Q1

REPORT INFORMATION
  Report Type: Spontaneous
  Country: US (occurrence: None)
  Receive Date: 20130305
  Receipt Date: 20130305
  Transmission Date: 20140127
  Serious: Yes (Other)
  Sender: FDA-Public Use
  Company Number: 163-21880-12082856

PATIENT
  Age: 65 Year
  Sex: Male
  Weight: 97.52 kg

DRUGS (19)
  1. DEXAMETHASONE (DEXAMETHASONE) [Concomitant]
  2. FIBERCON (POLYCARBOPHIL CALCIUM) [Concomitant]
  3. FISH OIL (FISH OIL) [Concomitant]
  4. FLAXSEED OIL (LINSEED OIL) [Concomitant]
  5. FOLIC ACID  (FOLIC ACID) [Concomitant]
  6. GLIPIZIDE (GLIPIZIDE) [Concomitant]
  7. GLUCOSAMINE/CHONDROINTIN(GLUCOSAMINE W/CHONDROITIN SULFATE) [Concomitant]
  8. LOSARTAN(LOSARTAN) [Concomitant]
  9. METOPROLOL(METOPROLOL) [Concomitant]
  10. NEOMYCIN(NEOMYCIN) [Concomitant]
  11. SAW PALMETTO(SERENOA REPENS) [Concomitant]
  12. VELCADE(BORTEZOMIB) [Concomitant]
  13. VITAMIN B(VITAMIN B) [Concomitant]
  14. VITAMIN C(ASCORBIC ACID) [Concomitant]
  15. VITAMIN E(TOCOPHEROL) [Concomitant]
  16. REVLIMID [Suspect]
     Indication: PLASMA CELL MYELOMA
     Route: 048
     Dates: start: 20120411
  17. ASPIRIN (ACETYLSALICYLIC ACID) [Concomitant]
  18. CALCIUM (CALCIUM) [Concomitant]
  19. CP Q-10 (UBIDECARENONE) [Concomitant]

REACTIONS (2)
  - Insomnia [None]
  - Depression [None]
